FAERS Safety Report 9467558 (Version 1)
Quarter: 2013Q3

REPORT INFORMATION
  Report Type: Spontaneous
  Country: US (occurrence: US)
  Receive Date: 20130821
  Receipt Date: 20130821
  Transmission Date: 20140515
  Serious: No
  Sender: FDA-Public Use
  Company Number: US-MYLANLABS-2013S1015102

PATIENT
  Sex: Female

DRUGS (1)
  1. BUDESONIDE CAPSULES [Suspect]
     Route: 048
     Dates: start: 20130606

REACTIONS (2)
  - Diarrhoea [Not Recovered/Not Resolved]
  - Reaction to drug excipients [Not Recovered/Not Resolved]
